FAERS Safety Report 10626327 (Version 1)
Quarter: 2014Q4

REPORT INFORMATION
  Report Type: Spontaneous
  Country: US (occurrence: None)
  Receive Date: 20141121
  Receipt Date: 20141121
  Transmission Date: 20150529
  Serious: No
  Sender: FDA-Public Use
  Company Number: 163-10004-14073390

PATIENT
  Sex: Female
  Weight: 70.31 kg

DRUGS (6)
  1. METFORMIN [Concomitant]
     Active Substance: METFORMIN HYDROCHLORIDE
  2. BETAMETHASONE [Concomitant]
     Active Substance: BETAMETHASONE
  3. SITAGLIPTIN [Concomitant]
     Active Substance: SITAGLIPTIN
  4. OTEZLA [Suspect]
     Active Substance: APREMILAST
     Indication: PSORIATIC ARTHROPATHY
     Route: 048
     Dates: start: 201404
  5. FLURANDRENOLIDE [Concomitant]
     Active Substance: FLURANDRENOLIDE
  6. GLYBURIDE (GLIBENCLAMIDE) [Concomitant]
     Active Substance: GLYBURIDE

REACTIONS (1)
  - Weight decreased [None]

NARRATIVE: CASE EVENT DATE: 2014
